FAERS Safety Report 21374836 (Version 1)
Quarter: 2022Q3

REPORT INFORMATION
  Report Type: Spontaneous
  Country: TR (occurrence: TR)
  Receive Date: 20220926
  Receipt Date: 20220926
  Transmission Date: 20221027
  Serious: Yes (Other)
  Sender: FDA-Public Use
  Company Number: TR-AMGEN-TURSP2021133318

PATIENT

DRUGS (10)
  1. ADALIMUMAB [Suspect]
     Active Substance: ADALIMUMAB
     Indication: Juvenile idiopathic arthritis
     Dosage: 24 MILLIGRAM/M2
     Route: 058
  2. ADALIMUMAB [Suspect]
     Active Substance: ADALIMUMAB
     Indication: Uveitis
  3. ADALIMUMAB [Suspect]
     Active Substance: ADALIMUMAB
     Indication: Behcet^s syndrome
  4. ADALIMUMAB [Suspect]
     Active Substance: ADALIMUMAB
     Indication: Blau syndrome
  5. ADALIMUMAB [Suspect]
     Active Substance: ADALIMUMAB
     Indication: Chronic recurrent multifocal osteomyelitis
  6. ADALIMUMAB [Suspect]
     Active Substance: ADALIMUMAB
     Indication: Vogt-Koyanagi-Harada disease
  7. ADALIMUMAB [Suspect]
     Active Substance: ADALIMUMAB
     Indication: Arthritis
  8. METHOTREXATE SODIUM [Concomitant]
     Active Substance: METHOTREXATE SODIUM
  9. LEFLUNOMIDE [Concomitant]
     Active Substance: LEFLUNOMIDE
  10. SALAZOPYRINE [Concomitant]
     Active Substance: SULFASALAZINE

REACTIONS (18)
  - Hodgkin^s disease [Unknown]
  - Pneumonia [Unknown]
  - Retinal detachment [Unknown]
  - Iris adhesions [Unknown]
  - Glaucoma [Unknown]
  - Cataract [Unknown]
  - Meningitis tuberculous [Unknown]
  - Adverse event [Unknown]
  - Erythema annulare [Unknown]
  - Hypertransaminasaemia [Unknown]
  - COVID-19 [Unknown]
  - Therapy non-responder [Unknown]
  - Latent tuberculosis [Unknown]
  - Dermatitis [Unknown]
  - Upper respiratory tract infection [Unknown]
  - Injection site reaction [Unknown]
  - Visual acuity reduced [Unknown]
  - Keratopathy [Unknown]
